FAERS Safety Report 18307733 (Version 1)
Quarter: 2020Q3

REPORT INFORMATION
  Report Type: Spontaneous
  Country: NL (occurrence: NL)
  Receive Date: 20200924
  Receipt Date: 20200924
  Transmission Date: 20201103
  Serious: Yes (Life-Threatening)
  Sender: FDA-Public Use
  Company Number: NL-MYLANLABS-2020M1080251

PATIENT
  Age: 71 Year
  Sex: Male
  Weight: 60 kg

DRUGS (6)
  1. OLANZAPINE. [Suspect]
     Active Substance: OLANZAPINE
     Indication: RESTLESSNESS
     Dosage: 1 DOSAGE FORM, QD (1 KEER PER DAG 1 STUK(S))
     Route: 048
     Dates: start: 201402, end: 20140728
  2. SALBUTAMOL [Concomitant]
     Active Substance: ALBUTEROL
     Dosage: 1 DOSAGE FORM (VOLGENS VOORSCHRIFT)
     Route: 055
  3. FYTOMENADION [Concomitant]
     Active Substance: PHYTONADIONE
     Dosage: 1 MILLILITER, QD (1DD1ML)
     Route: 065
  4. NADROPARINE [Concomitant]
     Active Substance: NADROPARIN
     Dosage: 0.3 MILLILITER, QD (1DD0,3ML)
     Route: 065
  5. THIAMINE. [Concomitant]
     Active Substance: THIAMINE
     Dosage: 1 MILLIGRAM, QD (1DD1 I.M.)
     Route: 030
  6. ESOMEPRAZOL                        /01479301/ [Concomitant]
     Active Substance: ESOMEPRAZOLE
     Dosage: 40 MILLIGRAM, QD (1DD1)
     Route: 048

REACTIONS (1)
  - Catatonia [Recovering/Resolving]

NARRATIVE: CASE EVENT DATE: 20140328
